FAERS Safety Report 17757391 (Version 1)
Quarter: 2020Q2

REPORT INFORMATION
  Report Type: Report from Study
  Country: ES (occurrence: ES)
  Receive Date: 20200507
  Receipt Date: 20200507
  Transmission Date: 20200714
  Serious: Yes (Death)
  Sender: FDA-Public Use
  Company Number: ES-SAOL THERAPEUTICS-2020SAO00119

PATIENT
  Sex: Female
  Weight: 79 kg

DRUGS (1)
  1. LIORESAL [Suspect]
     Active Substance: BACLOFEN
     Route: 037

REACTIONS (2)
  - Cardio-respiratory arrest [Fatal]
  - Aspiration [Fatal]
